FAERS Safety Report 6033907-2 (Version None)
Quarter: 2009Q1

REPORT INFORMATION
  Report Type: 
  Country: None (occurrence: None)
  Receive Date: 20090112
  Receipt Date: 20090107
  Transmission Date: 20090719
  Serious: Yes (Other)
  Sender: FDA-Public Use
  Company Number: JP-NOVOPROD-279447

PATIENT
  Age: 9 Year
  Sex: Female
  Weight: 20 kg

DRUGS (2)
  1. NORDITROPIN S CHU [Suspect]
     Indication: TURNER'S SYNDROME
     Dosage: 1.1 MG, UNK
     Route: 058
     Dates: start: 20071205, end: 20080930
  2. NORDITROPIN S CHU [Suspect]
     Dosage: 7.9 MG/WEEK
     Route: 058
     Dates: start: 20081204

REACTIONS (1)
  - BASAL CELL CARCINOMA [None]
